FAERS Safety Report 4304243-7 (Version None)
Quarter: 2004Q1

REPORT INFORMATION
  Report Type: 
  Country: None (occurrence: None)
  Receive Date: 20040225
  Receipt Date: 19991110
  Transmission Date: 20041129
  Serious: Yes (Hospitalization)
  Sender: FDA-Public Use
  Company Number: WAES 99113610

PATIENT
  Age: 62 Year
  Sex: Male
  Weight: 106 kg

DRUGS (3)
  1. AMLODIPINE BENZENESULFONATE [Concomitant]
  2. ASPIRIN [Concomitant]
  3. ZOCOR [Suspect]
     Indication: HYPERCHOLESTEROLAEMIA
     Route: 048
     Dates: start: 19991101, end: 19991101

REACTIONS (4)
  - BLOOD CREATINE PHOSPHOKINASE INCREASED [None]
  - BLOOD CREATINE PHOSPHOKINASE MB INCREASED [None]
  - CHEST WALL PAIN [None]
  - MYALGIA [None]
